FAERS Safety Report 6458801-4 (Version None)
Quarter: 2009Q4

REPORT INFORMATION
  Report Type: 
  Country: None (occurrence: None)
  Receive Date: 20091127
  Receipt Date: 20091120
  Transmission Date: 20100525
  Serious: Yes (Hospitalization)
  Sender: FDA-Public Use
  Company Number: FR-ROCHE-670386

PATIENT
  Sex: Male

DRUGS (8)
  1. RIVOTRIL [Suspect]
     Indication: EPILEPSY
     Route: 048
     Dates: start: 20090601
  2. RIVOTRIL [Suspect]
     Dosage: DOSE REDUCED
     Route: 048
     Dates: start: 20090609, end: 20090708
  3. DEPAKINE CHRONO [Suspect]
     Indication: EPILEPSY
     Dosage: FORM: DIVISIBLE COATED TABLET
     Route: 048
     Dates: start: 20090601
  4. DEPAKINE CHRONO [Suspect]
     Dosage: DOSE DECREASED
     Route: 048
     Dates: start: 20090609
  5. DEPAKINE CHRONO [Suspect]
     Dosage: DOSE DECREASED
     Route: 048
     Dates: start: 20090708
  6. NEURONTIN [Suspect]
     Indication: EPILEPSY
     Dosage: FORM: COATED TABLET
     Route: 048
     Dates: start: 20090601
  7. NEURONTIN [Suspect]
     Dosage: DOSE REDUCED
     Route: 048
     Dates: start: 20090708
  8. AUGMENTIN [Concomitant]
     Route: 048
     Dates: start: 20090610

REACTIONS (4)
  - AUTONOMIC NERVOUS SYSTEM IMBALANCE [None]
  - DYSARTHRIA [None]
  - POVERTY OF THOUGHT CONTENT [None]
  - PSYCHOMOTOR SKILLS IMPAIRED [None]
